FAERS Safety Report 8080237-3 (Version None)
Quarter: 2012Q1

REPORT INFORMATION
  Report Type: 
  Country: None (occurrence: None)
  Receive Date: 20120130
  Receipt Date: 20120119
  Transmission Date: 20120608
  Serious: Yes (Death, Other)
  Sender: FDA-Public Use
  Company Number: US-ELI_LILLY_AND_COMPANY-USA0507102628

PATIENT
  Age: 35 Year
  Sex: Male

DRUGS (7)
  1. LEXAPRO [Concomitant]
     Dosage: UNK
  2. ATIVAN [Concomitant]
     Indication: AFFECTIVE DISORDER
  3. ZYPREXA [Suspect]
     Indication: PSYCHOTIC DISORDER
     Dosage: 5 MG, QD
     Dates: start: 20020101, end: 20020401
  4. ZYPREXA [Suspect]
     Dosage: 5 MG, QD
     Dates: start: 20020501, end: 20050501
  5. BUSPAR [Concomitant]
     Indication: AFFECTIVE DISORDER
  6. ZYPREXA [Suspect]
     Dosage: 2.5 MG, QD
     Dates: start: 20050501, end: 20050601
  7. LITHIUM CARBONATE [Concomitant]
     Indication: AFFECTIVE DISORDER
     Dosage: 1350 MG, UNK

REACTIONS (6)
  - COMPLETED SUICIDE [None]
  - SLEEP APNOEA SYNDROME [None]
  - WEIGHT INCREASED [None]
  - SEDATION [None]
  - INCREASED APPETITE [None]
  - INTENTIONAL DRUG MISUSE [None]
